FAERS Safety Report 6497621-1 (Version None)
Quarter: 2009Q4

REPORT INFORMATION
  Report Type: 
  Country: None (occurrence: None)
  Receive Date: 20091215
  Receipt Date: 20091211
  Transmission Date: 20100525
  Serious: Yes (Death, Other)
  Sender: FDA-Public Use
  Company Number: US-JNJFOC-20091204013

PATIENT
  Age: 44 Year
  Sex: Male
  Weight: 96.62 kg

DRUGS (6)
  1. FENTANYL [Suspect]
     Indication: DRUG USE FOR UNKNOWN INDICATION
     Route: 065
  2. COCAINE [Suspect]
     Indication: DRUG USE FOR UNKNOWN INDICATION
     Route: 065
  3. DIAZEPAM [Concomitant]
  4. CELEXA [Concomitant]
  5. SALICYLIC ACID [Concomitant]
  6. BENZOYLECGONINE [Concomitant]

REACTIONS (2)
  - DRUG TOXICITY [None]
  - HYPERTENSIVE HEART DISEASE [None]
